FAERS Safety Report 13100604 (Version 1)
Quarter: 2017Q1

REPORT INFORMATION
  Report Type: Report from Study
  Country: US (occurrence: US)
  Receive Date: 20170110
  Receipt Date: 20170110
  Transmission Date: 20170428
  Serious: Yes (Hospitalization, Other)
  Sender: FDA-Public Use
  Company Number: US-BAYER-2014-190691

PATIENT
  Age: 37 Year
  Sex: Female
  Weight: 61 kg

DRUGS (13)
  1. ADEMPAS [Suspect]
     Active Substance: RIOCIGUAT
     Indication: COR PULMONALE CHRONIC
     Dosage: 0.5 MG, TID
     Route: 048
     Dates: start: 20141009
  2. ADEMPAS [Suspect]
     Active Substance: RIOCIGUAT
     Indication: PULMONARY ARTERIAL HYPERTENSION
     Dosage: 1 MG, TID
     Route: 048
     Dates: start: 20141227
  3. ADEMPAS [Suspect]
     Active Substance: RIOCIGUAT
     Indication: COR PULMONALE CHRONIC
     Dosage: 2.5 MG, TID
     Route: 048
  4. ADEMPAS [Suspect]
     Active Substance: RIOCIGUAT
     Indication: COR PULMONALE CHRONIC
     Dosage: 2.5 MG, TID
     Route: 048
     Dates: start: 20160629
  5. ADEMPAS [Suspect]
     Active Substance: RIOCIGUAT
     Indication: COR PULMONALE CHRONIC
     Dosage: 2 MG, TID
     Route: 048
  6. ADEMPAS [Suspect]
     Active Substance: RIOCIGUAT
     Indication: COR PULMONALE CHRONIC
     Dosage: 2.5 MG, TID
     Route: 048
  7. UPTRAVI [Suspect]
     Active Substance: SELEXIPAG
     Dosage: UNK
  8. ADEMPAS [Suspect]
     Active Substance: RIOCIGUAT
     Indication: COR PULMONALE CHRONIC
     Dosage: 2.5 MG, TID
     Route: 048
     Dates: start: 20141208
  9. ADEMPAS [Suspect]
     Active Substance: RIOCIGUAT
     Indication: COR PULMONALE CHRONIC
     Dosage: 2.5 MG, TID
     Route: 048
  10. LETAIRIS [Suspect]
     Active Substance: AMBRISENTAN
  11. ADEMPAS [Suspect]
     Active Substance: RIOCIGUAT
     Indication: COR PULMONALE CHRONIC
     Dosage: 1.5 MG, TID
     Route: 048
  12. ADEMPAS [Suspect]
     Active Substance: RIOCIGUAT
     Indication: COR PULMONALE CHRONIC
     Dosage: 2.5 MG, TID
     Route: 048
     Dates: start: 20160806
  13. COUMADIN [Concomitant]
     Active Substance: WARFARIN SODIUM

REACTIONS (28)
  - Photopsia [Unknown]
  - Alopecia [Unknown]
  - Constipation [Unknown]
  - Headache [None]
  - Device related infection [None]
  - Nasopharyngitis [Unknown]
  - Headache [Unknown]
  - Insomnia [None]
  - International normalised ratio increased [None]
  - Device related infection [None]
  - Short-bowel syndrome [None]
  - Nausea [Unknown]
  - Pyrexia [Recovered/Resolved]
  - Lung infection [None]
  - Mobility decreased [Recovering/Resolving]
  - Urine output decreased [Unknown]
  - Vomiting [None]
  - Nausea [Recovering/Resolving]
  - Abdominal discomfort [None]
  - Abdominal pain [None]
  - Dyspepsia [None]
  - Vomiting [None]
  - Dizziness [Unknown]
  - Gastrooesophageal reflux disease [None]
  - Device related infection [Recovered/Resolved]
  - Malaise [Recovering/Resolving]
  - Vomiting [Recovering/Resolving]
  - Dyspepsia [None]

NARRATIVE: CASE EVENT DATE: 201501
